FAERS Safety Report 5005136-2 (Version None)
Quarter: 2006Q2

REPORT INFORMATION
  Report Type: 
  Country: None (occurrence: None)
  Receive Date: 20060512
  Receipt Date: 20060427
  Transmission Date: 20061013
  Serious: Yes (Hospitalization)
  Sender: FDA-Public Use
  Company Number: WAES 041OSWE00009

PATIENT
  Age: 50 Year
  Sex: Female

DRUGS (4)
  1. VIOXX [Suspect]
     Indication: NEOPLASM PROPHYLAXIS
     Dosage: 25 MG/DAILY/PO
     Route: 048
     Dates: start: 20010327, end: 20040321
  2. ACETAMINOPHEN [Suspect]
     Indication: PROPHYLAXIS
     Dosage: 325MG/PRN/PO
     Route: 048
     Dates: start: 20010213, end: 20040321
  3. IBUPROFEN [Concomitant]
  4. LANSOPRAZOLE [Concomitant]

REACTIONS (4)
  - CORONARY ARTERY STENOSIS [None]
  - HAEMOGLOBIN DECREASED [None]
  - MYOCARDIAL INFARCTION [None]
  - POST PROCEDURAL HAEMATOMA [None]
